FAERS Safety Report 8297823-8 (Version None)
Quarter: 2012Q2

REPORT INFORMATION
  Report Type: 
  Country: None (occurrence: None)
  Receive Date: 20120417
  Receipt Date: 20120405
  Transmission Date: 20120825
  Serious: Yes (Hospitalization)
  Sender: FDA-Public Use
  Company Number: UTC-016485

PATIENT
  Age: 47 Year
  Sex: Female
  Weight: 96.6 kg

DRUGS (4)
  1. TRACLEER [Concomitant]
  2. COUMADIN [Suspect]
     Indication: PRODUCT USED FOR UNKNOWN INDICATION
  3. DIURETICS (DIURETICS) [Concomitant]
  4. REMODULIN [Suspect]
     Indication: PULMONARY ARTERIAL HYPERTENSION
     Dosage: 89.28 UG/KG (0.062 UG/KG, 1 IN 1 MIN), SUBCUTANEOUS
     Route: 058
     Dates: start: 20090825

REACTIONS (1)
  - HAEMOPTYSIS [None]
